FAERS Safety Report 10161983 (Version 1)
Quarter: 2014Q2

REPORT INFORMATION
  Report Type: Spontaneous
  Country: US (occurrence: None)
  Receive Date: 20140507
  Receipt Date: 20140507
  Transmission Date: 20141212
  Serious: Yes (Hospitalization)
  Sender: FDA-Public Use
  Company Number: 1224850-2014-0003

PATIENT
  Age: 52 Year
  Sex: 0

DRUGS (15)
  1. PHOSLO [Suspect]
     Indication: HYPOPHOSPHATAEMIA
  2. LIBERTY CYCLER [Concomitant]
  3. LIBERTY CYCLER CASSETTE [Concomitant]
  4. DELFLEX PD SOLUTIONS [Concomitant]
  5. ASPIRIN [Concomitant]
  6. CALCITROL [Concomitant]
  7. CARVEDILOL [Concomitant]
  8. DOXAZOSIN [Concomitant]
  9. LACTULOSE [Concomitant]
  10. LISINOPRIL [Concomitant]
  11. NEPHRO-VITE [Concomitant]
  12. PRAVASTATIN [Concomitant]
  13. SENSIPAR [Concomitant]
  14. TUMS [Concomitant]
  15. OMEPRAZOLE [Concomitant]

REACTIONS (6)
  - Discomfort [None]
  - Fluid overload [None]
  - Therapy cessation [None]
  - Dyspnoea [None]
  - Chest pain [None]
  - Pericarditis [None]
